FAERS Safety Report 9096007 (Version 2)
Quarter: 2013Q3

REPORT INFORMATION
  Report Type: Spontaneous
  Country: US (occurrence: US)
  Receive Date: 20130207
  Receipt Date: 20130912
  Transmission Date: 20140515
  Serious: Yes (Other)
  Sender: FDA-Public Use
  Company Number: US-JNJFOC-20121209129

PATIENT
  Age: 13 Year
  Sex: Male
  Weight: 43.09 kg

DRUGS (4)
  1. IMODIUM A-D [Suspect]
     Route: 048
  2. IMODIUM A-D [Suspect]
     Indication: DIARRHOEA
     Route: 048
     Dates: start: 20121213, end: 20121214
  3. CLARITIN [Concomitant]
     Indication: MULTIPLE ALLERGIES
     Route: 065
  4. ALLERGY DESENSITIZING INJECTION [Concomitant]
     Indication: MULTIPLE ALLERGIES
     Route: 065

REACTIONS (5)
  - Dyspnoea [Recovered/Resolved]
  - Throat irritation [Recovered/Resolved]
  - Rash [Recovered/Resolved]
  - Rhinorrhoea [Not Recovered/Not Resolved]
  - Cough [Recovered/Resolved]
